FAERS Safety Report 11926438 (Version 1)
Quarter: 2016Q1

REPORT INFORMATION
  Report Type: Spontaneous
  Country: GB (occurrence: GB)
  Receive Date: 20160119
  Receipt Date: 20160119
  Transmission Date: 20160526
  Serious: Yes (Other)
  Sender: FDA-Public Use
  Company Number: GB-ASTRAZENECA-2016SE04370

PATIENT
  Age: 56 Year
  Sex: Female

DRUGS (8)
  1. ATORVASTATIN [Concomitant]
     Active Substance: ATORVASTATIN
  2. GABAPENTIN. [Concomitant]
     Active Substance: GABAPENTIN
  3. LISINOPRIL. [Concomitant]
     Active Substance: LISINOPRIL
  4. METFORMIN [Concomitant]
     Active Substance: METFORMIN HYDROCHLORIDE
  5. BETAHISTINE [Concomitant]
     Active Substance: BETAHISTINE
  6. OMEPRAZOLE. [Suspect]
     Active Substance: OMEPRAZOLE
     Indication: DYSPEPSIA
     Dosage: 20 DOSES IN 3 UNITS
     Route: 048
     Dates: start: 20151201
  7. PAROXETINE [Concomitant]
     Active Substance: PAROXETINE\PAROXETINE HYDROCHLORIDE
  8. AMLODIPINE [Concomitant]
     Active Substance: AMLODIPINE BESYLATE

REACTIONS (2)
  - Polyarthritis [Recovered/Resolved]
  - Sleep disorder due to general medical condition, insomnia type [Recovered/Resolved]

NARRATIVE: CASE EVENT DATE: 20151203
